FAERS Safety Report 14452475 (Version 4)
Quarter: 2018Q1

REPORT INFORMATION
  Report Type: Spontaneous
  Country: US (occurrence: US)
  Receive Date: 20180129
  Receipt Date: 20180313
  Transmission Date: 20180509
  Serious: No
  Sender: FDA-Public Use
  Company Number: US-PFIZER INC-2018035582

PATIENT
  Age: 71 Year
  Sex: Female
  Weight: 58.5 kg

DRUGS (4)
  1. GABAPENTIN. [Concomitant]
     Active Substance: GABAPENTIN
     Indication: BACK PAIN
     Dosage: UNK
  2. GABAPENTIN. [Concomitant]
     Active Substance: GABAPENTIN
     Indication: ARTHRITIS
  3. XELJANZ [Suspect]
     Active Substance: TOFACITINIB CITRATE
     Dosage: 5 MG, 2X/DAY (12 HOURS APART)
     Route: 048
     Dates: start: 201801
  4. XELJANZ [Suspect]
     Active Substance: TOFACITINIB CITRATE
     Indication: RHEUMATOID ARTHRITIS
     Dosage: 5 MG, 2X/DAY (EVERY 12 HOURS)
     Route: 048

REACTIONS (5)
  - Oral mucosal blistering [Unknown]
  - Tongue fungal infection [Unknown]
  - Oral disorder [Unknown]
  - Oral discomfort [Unknown]
  - Oral fungal infection [Recovering/Resolving]

NARRATIVE: CASE EVENT DATE: 201801
